FAERS Safety Report 23518268 (Version 1)
Quarter: 2024Q1

REPORT INFORMATION
  Report Type: Spontaneous
  Country: CN (occurrence: CN)
  Receive Date: 20240213
  Receipt Date: 20240213
  Transmission Date: 20240410
  Serious: Yes (Life-Threatening, Other)
  Sender: FDA-Public Use
  Company Number: CN-PFIZER INC-PV202400019711

PATIENT
  Age: 7 Year
  Sex: Female

DRUGS (9)
  1. METHYLPREDNISOLONE SODIUM SUCCINATE [Suspect]
     Active Substance: METHYLPREDNISOLONE SODIUM SUCCINATE
     Indication: Toxic epidermal necrolysis
     Dosage: 10 MG/KG PER DAY FOR 3 DAYS
     Route: 042
  2. METHYLPREDNISOLONE SODIUM SUCCINATE [Suspect]
     Active Substance: METHYLPREDNISOLONE SODIUM SUCCINATE
     Dosage: 20 MG/KG PER DAY FOR 4 DAYS FOR PULSE THERAPY
     Route: 042
  3. HUMAN IMMUNOGLOBULIN G [Suspect]
     Active Substance: HUMAN IMMUNOGLOBULIN G
     Indication: Toxic epidermal necrolysis
     Dosage: 1 G/KG PER DAY FOR 2 DAYS
     Route: 042
  4. IODINE [Concomitant]
     Active Substance: IODINE
     Indication: Rash
     Dosage: TOPICAL IODINE TINCTURE
     Route: 061
  5. MUPIROCIN [Concomitant]
     Active Substance: MUPIROCIN
     Indication: Rash
     Dosage: UNK
     Route: 061
  6. GATIFLOXACIN [Concomitant]
     Active Substance: GATIFLOXACIN
     Indication: Eye disorder
     Dosage: EYE DROPS 3 TIMES DAILY
     Route: 047
  7. PRANOPROFEN [Concomitant]
     Active Substance: PRANOPROFEN
     Indication: Eye disorder
     Dosage: EYE DROPS 3 TIMES DAILY
     Route: 047
  8. NAPROXEN [Concomitant]
     Active Substance: NAPROXEN
     Indication: Pyrexia
     Dosage: UNK
  9. SODIUM HYALURONATE [Concomitant]
     Active Substance: HYALURONATE SODIUM
     Indication: Eye disorder
     Dosage: EYE DROPS 3 TIMES DAILY
     Route: 047

REACTIONS (2)
  - Drug ineffective for unapproved indication [Unknown]
  - Off label use [Unknown]
